FAERS Safety Report 24721734 (Version 1)
Quarter: 2024Q4

REPORT INFORMATION
  Report Type: Spontaneous
  Country: US (occurrence: None)
  Receive Date: 20241210
  Receipt Date: 20241210
  Transmission Date: 20250114
  Serious: Yes (Hospitalization)
  Sender: Public
  Company Number: None

PATIENT
  Age: 84 Year
  Sex: Male

DRUGS (1)
  1. CASIRIVIMAB\IMDEVIMAB [Suspect]
     Active Substance: CASIRIVIMAB\IMDEVIMAB
     Indication: COVID-19
     Dosage: 600.00 MG ONCE INTRAVENOUS?
     Route: 042
     Dates: start: 20210924, end: 20210924

REACTIONS (4)
  - Dizziness [None]
  - Lung disorder [None]
  - Lung infiltration [None]
  - Acute kidney injury [None]

NARRATIVE: CASE EVENT DATE: 20210924
